FAERS Safety Report 9889130 (Version 1)
Quarter: 2014Q1

REPORT INFORMATION
  Report Type: Spontaneous
  Country: US (occurrence: None)
  Receive Date: 20140207
  Receipt Date: 20140207
  Transmission Date: 20141002
  Serious: Yes (Hospitalization)
  Sender: FDA-Public Use
  Company Number: DSU-2014-00185

PATIENT
  Sex: Male

DRUGS (1)
  1. OLMESARTAN (OLMESARTAN) (TABLET) (OLMESARTAN) [Suspect]
     Indication: HYPERTENSION
     Route: 048

REACTIONS (5)
  - Diarrhoea [None]
  - Weight decreased [None]
  - Malabsorption [None]
  - Dehydration [None]
  - Blood creatinine increased [None]
